FAERS Safety Report 6528382-5 (Version None)
Quarter: 2010Q1

REPORT INFORMATION
  Report Type: 
  Country: None (occurrence: None)
  Receive Date: 20100106
  Receipt Date: 20100104
  Transmission Date: 20100710
  Serious: Yes (Life-Threatening, Disabling, Other)
  Sender: FDA-Public Use
  Company Number: A0122802A

PATIENT
  Age: 53 Year
  Sex: Male
  Weight: 100 kg

DRUGS (2)
  1. LAMICTAL [Suspect]
     Indication: EPILEPSY
     Dosage: 250MG VARIABLE DOSE
     Route: 048
     Dates: start: 19991001, end: 20091101
  2. DEPAKOTE [Concomitant]
     Route: 065

REACTIONS (8)
  - BALANCE DISORDER [None]
  - BLOOD PRESSURE INCREASED [None]
  - CONSTIPATION [None]
  - FEELING HOT [None]
  - HOT FLUSH [None]
  - NIGHT SWEATS [None]
  - RENAL IMPAIRMENT [None]
  - TREMOR [None]
